FAERS Safety Report 4610542-1 (Version None)
Quarter: 2005Q1

REPORT INFORMATION
  Report Type: 
  Country: None (occurrence: None)
  Receive Date: 20050316
  Receipt Date: 20050228
  Transmission Date: 20050727
  Serious: Yes (Other)
  Sender: FDA-Public Use
  Company Number: TRP_0074_2005

PATIENT
  Age: 41 Year
  Sex: Male

DRUGS (6)
  1. RIBASPHERE [Suspect]
     Indication: HEPATITIS C
     Dosage: DF PO
     Route: 048
     Dates: start: 20050118
  2. PEG-INTRON [Suspect]
     Indication: HEPATITIS C
     Dosage: DF SC
     Route: 058
     Dates: start: 20050118
  3. EFFEXOR [Suspect]
     Dosage: DF
  4. FLONASE [Concomitant]
  5. MOTRIN [Concomitant]
  6. TYLENOL (CAPLET) [Concomitant]

REACTIONS (2)
  - THINKING ABNORMAL [None]
  - UNEVALUABLE EVENT [None]
